FAERS Safety Report 5827395-6 (Version None)
Quarter: 2008Q3

REPORT INFORMATION
  Report Type: 
  Country: None (occurrence: None)
  Receive Date: 20080730
  Receipt Date: 20071012
  Transmission Date: 20090109
  Serious: No
  Sender: FDA-Public Use
  Company Number: US-BAUSCH-2007BL003750

PATIENT

DRUGS (1)
  1. TROPICAMIDE [Suspect]
     Indication: MYDRIASIS
     Route: 047

REACTIONS (1)
  - DRUG EFFECT DECREASED [None]
